FAERS Safety Report 4614199-5 (Version None)
Quarter: 2005Q1

REPORT INFORMATION
  Report Type: 
  Country: None (occurrence: None)
  Receive Date: 20050315
  Receipt Date: 20050121
  Transmission Date: 20050727
  Serious: Yes (Hospitalization, Other)
  Sender: FDA-Public Use
  Company Number: 2004092167

PATIENT
  Age: 75 Year
  Sex: Female

DRUGS (4)
  1. BEXTRA [Suspect]
     Indication: MUSCLE STRAIN
     Dosage: 10 MG
     Dates: start: 20021025, end: 20021110
  2. BEXTRA [Suspect]
     Indication: SPINAL OSTEOARTHRITIS
     Dosage: 10 MG
     Dates: start: 20021025, end: 20021110
  3. HYDROXYZINE HCL [Concomitant]
  4. FEXOFENADINE HYDROCHLORIDE [Concomitant]

REACTIONS (1)
  - STEVENS-JOHNSON SYNDROME [None]
